FAERS Safety Report 18455270 (Version 1)
Quarter: 2020Q4

REPORT INFORMATION
  Report Type: Spontaneous
  Country: US (occurrence: US)
  Receive Date: 20201102
  Receipt Date: 20201102
  Transmission Date: 20210114
  Serious: Yes (Other)
  Sender: FDA-Public Use
  Company Number: US-PURDUE-USA-2020-0173727

PATIENT
  Sex: Female

DRUGS (2)
  1. OXYCONTIN [Suspect]
     Active Substance: OXYCODONE HYDROCHLORIDE
     Indication: PRODUCT USED FOR UNKNOWN INDICATION
     Dosage: UNK
     Route: 048
  2. HYDROCODONE BITARTRATE AND ACETAMINOPHEN [Suspect]
     Active Substance: ACETAMINOPHEN\HYDROCODONE BITARTRATE
     Indication: PRODUCT USED FOR UNKNOWN INDICATION
     Dosage: UNK
     Route: 048

REACTIONS (24)
  - Deafness [Unknown]
  - Fatigue [Unknown]
  - Faeces pale [Unknown]
  - Confusional state [Unknown]
  - Balance disorder [Unknown]
  - Headache [Unknown]
  - Chromaturia [Unknown]
  - Visual impairment [Unknown]
  - Hypersensitivity [Unknown]
  - Mood altered [Unknown]
  - Agitation [Unknown]
  - Eye irritation [Unknown]
  - Hyperhidrosis [Unknown]
  - Haemorrhage [Unknown]
  - Dizziness [Unknown]
  - Gait disturbance [Unknown]
  - Asthenia [Unknown]
  - Drug dependence [Unknown]
  - Yellow skin [Unknown]
  - Constipation [Unknown]
  - Heart rate increased [Unknown]
  - Chills [Unknown]
  - Contusion [Unknown]
  - Hallucination [Unknown]
